FAERS Safety Report 8493279-0 (Version None)
Quarter: 2012Q3

REPORT INFORMATION
  Report Type: 
  Country: None (occurrence: None)
  Receive Date: 20120706
  Receipt Date: 20120629
  Transmission Date: 20120928
  Serious: Yes (Death, Other)
  Sender: FDA-Public Use
  Company Number: DE-MILLENNIUM PHARMACEUTICALS, INC.-2011-05456

PATIENT

DRUGS (8)
  1. THALIDOMIDE [Suspect]
     Indication: ACUTE MYELOID LEUKAEMIA
  2. MELPHALAN HYDROCHLORIDE [Suspect]
     Indication: MULTIPLE MYELOMA
     Dosage: 200 MG/M2, CYCLIC
  3. VELCADE [Suspect]
     Indication: ACUTE MYELOID LEUKAEMIA
  4. VELCADE [Suspect]
     Indication: MULTIPLE MYELOMA
  5. INTERFERON [Suspect]
     Indication: ACUTE MYELOID LEUKAEMIA
  6. THALIDOMIDE [Suspect]
     Indication: MULTIPLE MYELOMA
  7. INTERFERON [Suspect]
     Indication: MULTIPLE MYELOMA
  8. MELPHALAN HYDROCHLORIDE [Suspect]
     Indication: ACUTE MYELOID LEUKAEMIA

REACTIONS (2)
  - NEOPLASM MALIGNANT [None]
  - ACUTE MYELOID LEUKAEMIA [None]
